FAERS Safety Report 4426212-9 (Version None)
Quarter: 2004Q3

REPORT INFORMATION
  Report Type: 
  Country: None (occurrence: None)
  Receive Date: 20040811
  Receipt Date: 20040727
  Transmission Date: 20050211
  Serious: Yes (Other)
  Sender: FDA-Public Use
  Company Number: USA030740826

PATIENT
  Age: 64 Year
  Sex: Female
  Weight: 93 kg

DRUGS (6)
  1. HUMALOG [Suspect]
     Indication: DIABETES MELLITUS
     Dates: start: 20030705
  2. HUMALOG [Suspect]
     Indication: BLOOD GLUCOSE INCREASED
     Dosage: 12 U DAY
     Dates: start: 20040501
  3. HUMALOG-HUMAN NPH INSULIN (RDNA) (HUMAN INSULIN (RD [Suspect]
     Indication: DIABETES MELLITUS
     Dates: end: 20040501
  4. HUMALOG-HUMAN REGULAR INSULIN (RDNA) (HUMAN INSULIN [Suspect]
     Dates: end: 20040501
  5. NOVOLIN R [Concomitant]
  6. NOVOLIN N [Concomitant]

REACTIONS (16)
  - ACCIDENTAL NEEDLE STICK [None]
  - BLINDNESS [None]
  - BLOOD GLUCOSE DECREASED [None]
  - BLOOD GLUCOSE INCREASED [None]
  - CATARACT [None]
  - EYE DISORDER [None]
  - EYE HAEMORRHAGE [None]
  - FEELING ABNORMAL [None]
  - HAEMORRHAGE [None]
  - INSULIN RESISTANCE [None]
  - MEMORY IMPAIRMENT [None]
  - OEDEMA PERIPHERAL [None]
  - PHARMACEUTICAL PRODUCT COMPLAINT [None]
  - SPEECH DISORDER [None]
  - VISUAL ACUITY REDUCED [None]
  - WEIGHT INCREASED [None]
